FAERS Safety Report 13512039 (Version 1)
Quarter: 2017Q2

REPORT INFORMATION
  Report Type: Spontaneous
  Country: US (occurrence: US)
  Receive Date: 20170504
  Receipt Date: 20170504
  Transmission Date: 20170830
  Serious: Yes (Hospitalization, Other)
  Sender: FDA-Public Use
  Company Number: US-AMGEN-USASP2017064328

PATIENT
  Age: 71 Year
  Sex: Male

DRUGS (2)
  1. SENSIPAR [Suspect]
     Active Substance: CINACALCET HYDROCHLORIDE
     Indication: PARATHYROID DISORDER
     Dosage: 30 MG, QD
     Route: 048
     Dates: start: 201412
  2. SENSIPAR [Suspect]
     Active Substance: CINACALCET HYDROCHLORIDE
     Dosage: 60 MG, QD
     Route: 048

REACTIONS (13)
  - Hand fracture [Unknown]
  - Parathyroid disorder [Unknown]
  - Vertigo [Unknown]
  - Oesophageal carcinoma [Unknown]
  - Burn oesophageal [Unknown]
  - Malignant melanoma [Unknown]
  - Spinal column stenosis [Unknown]
  - Vasculitis [Unknown]
  - Fall [Unknown]
  - Prostatic disorder [Unknown]
  - Gallbladder disorder [Unknown]
  - Biopsy bone marrow [Unknown]
  - Facial paralysis [Unknown]

NARRATIVE: CASE EVENT DATE: 201507
